FAERS Safety Report 5098971-6 (Version None)
Quarter: 2006Q3

REPORT INFORMATION
  Report Type: 
  Country: None (occurrence: None)
  Receive Date: 20060907
  Receipt Date: 20060828
  Transmission Date: 20061208
  Serious: Yes (Hospitalization)
  Sender: FDA-Public Use
  Company Number: JP-ABBOTT-06P-087-0342678-00

PATIENT
  Sex: Female

DRUGS (5)
  1. KLARICID DRY SYRUP [Suspect]
     Indication: TONSILLITIS
     Route: 048
     Dates: start: 20060714, end: 20060715
  2. TIPEPIDINE HIBENZATE [Suspect]
     Indication: UPPER RESPIRATORY TRACT INFLAMMATION
     Route: 048
     Dates: start: 20060710, end: 20060715
  3. PELEX [Suspect]
     Indication: UPPER RESPIRATORY TRACT INFLAMMATION
     Route: 048
     Dates: start: 20060710, end: 20060715
  4. CEFDITOREN PIVOXIL [Suspect]
     Indication: UPPER RESPIRATORY TRACT INFLAMMATION
     Route: 048
     Dates: start: 20060714, end: 20060715
  5. TULOBUTEROL [Concomitant]
     Indication: UPPER RESPIRATORY TRACT INFECTION
     Route: 062
     Dates: start: 20060710

REACTIONS (4)
  - CONJUNCTIVAL HYPERAEMIA [None]
  - MALAISE [None]
  - RASH [None]
  - STEVENS-JOHNSON SYNDROME [None]
